FAERS Safety Report 18234344 (Version 2)
Quarter: 2021Q4

REPORT INFORMATION
  Report Type: Spontaneous
  Country: DE (occurrence: DE)
  Receive Date: 20200904
  Receipt Date: 20211108
  Transmission Date: 20220303
  Serious: Yes (Hospitalization)
  Sender: FDA-Public Use
  Company Number: DE-NOVARTISPH-NVSC2020DE238545

PATIENT
  Sex: Female
  Weight: 86 kg

DRUGS (3)
  1. RITUXIMAB [Suspect]
     Active Substance: RITUXIMAB
     Indication: Non-Hodgkin^s lymphoma
     Dosage: 710 MG
     Route: 042
     Dates: start: 20200325, end: 20200429
  2. PEGFILGRASTIM [Suspect]
     Active Substance: PEGFILGRASTIM
     Indication: Product used for unknown indication
     Dosage: 6 MG (CYCLE 1 STRENGTH: 6 MG)
     Route: 058
     Dates: start: 20200501
  3. BENDAMUSTINE [Suspect]
     Active Substance: BENDAMUSTINE
     Indication: Non-Hodgkin^s lymphoma
     Dosage: 130 MG
     Route: 042
     Dates: start: 20200326, end: 20200430

REACTIONS (3)
  - Impaired healing [Recovered/Resolved]
  - Cellulitis [Recovered/Resolved]
  - Metastases to lymph nodes [Recovered/Resolved]

NARRATIVE: CASE EVENT DATE: 20200523
